FAERS Safety Report 16696170 (Version 2)
Quarter: 2019Q4

REPORT INFORMATION
  Report Type: Spontaneous
  Country: PK (occurrence: PK)
  Receive Date: 20190813
  Receipt Date: 20191018
  Transmission Date: 20200122
  Serious: Yes (Other)
  Sender: FDA-Public Use
  Company Number: PK-MACLEODS PHARMACEUTICALS US LTD-MAC2019022510

PATIENT

DRUGS (1)
  1. METFORMIN HYDROCHLORIDE. [Suspect]
     Active Substance: METFORMIN HYDROCHLORIDE
     Indication: POLYCYSTIC OVARIES
     Dosage: 500 MILLIGRAM, BID
     Route: 065

REACTIONS (17)
  - Rheumatic fever [Unknown]
  - Arthralgia [Unknown]
  - Axillary pain [Unknown]
  - Type II hypersensitivity [Unknown]
  - Type IV hypersensitivity reaction [Unknown]
  - Palpitations [Unknown]
  - Mood altered [Recovering/Resolving]
  - Breast tenderness [Unknown]
  - Neuralgia [Unknown]
  - Pharyngitis [Unknown]
  - Migraine [Unknown]
  - Cluster headache [Unknown]
  - Hyperuricaemia [Recovering/Resolving]
  - Menorrhagia [Unknown]
  - Tonsillitis [Unknown]
  - Sinusitis [Unknown]
  - Myalgia [Recovering/Resolving]
